FAERS Safety Report 18744391 (Version 2)
Quarter: 2021Q1

REPORT INFORMATION
  Report Type: Spontaneous
  Country: US (occurrence: US)
  Receive Date: 20210114
  Receipt Date: 20210216
  Transmission Date: 20210419
  Serious: Yes (Other)
  Sender: FDA-Public Use
  Company Number: US-ASTRAZENECA-2021A003349

PATIENT
  Age: 25 Year
  Sex: Male
  Weight: 90.7 kg

DRUGS (20)
  1. SEROQUEL [Suspect]
     Active Substance: QUETIAPINE FUMARATE
     Indication: BIPOLAR DISORDER
     Dosage: GENERIC? 300 MG AT 9 PM AND 300MG AT 10 PM
     Route: 048
     Dates: start: 2010
  2. SEROQUEL [Suspect]
     Active Substance: QUETIAPINE FUMARATE
     Indication: BIPOLAR DISORDER
     Dosage: 300 MG, AT NIGHT
     Route: 048
  3. METROPOLOL SUCCINATE ER [Concomitant]
     Route: 048
  4. MIDODRINE [Concomitant]
     Active Substance: MIDODRINE
     Route: 065
  5. MIDODRINE [Concomitant]
     Active Substance: MIDODRINE
     Route: 065
  6. METOPROLOL. [Suspect]
     Active Substance: METOPROLOL
     Dosage: 50MG IN MORNING, 25 AT NIGHT
     Route: 048
  7. VITAMIN B COMPLEX [Concomitant]
     Active Substance: CYANOCOBALAMIN\DEXPANTHENOL\NIACINAMIDE\PYRIDOXINE HYDROCHLORIDE\RIBOFLAVIN 5^-PHOSPHATE SODIUM\THIAMINE HYDROCHLORIDE\VITAMIN B COMPLEX
     Route: 065
  8. CHROMULIN SODIUM [Concomitant]
     Route: 065
  9. METROPOLOL SUCCINATE ER [Concomitant]
     Route: 048
  10. MIDIGRIN [Concomitant]
     Indication: BLOOD PRESSURE MEASUREMENT
     Route: 065
  11. WELLBUTRIN [Concomitant]
     Active Substance: BUPROPION HYDROCHLORIDE
     Route: 065
  12. ZYRTEC [Concomitant]
     Active Substance: CETIRIZINE HYDROCHLORIDE
     Route: 065
  13. MAGNESIUM OXIDE. [Concomitant]
     Active Substance: MAGNESIUM OXIDE
     Dosage: 500.0MG UNKNOWN
     Route: 065
  14. SEROQUEL [Suspect]
     Active Substance: QUETIAPINE FUMARATE
     Indication: BIPOLAR DISORDER
     Dosage: INTERVAL OF 1 HOUR (2X 300 MG DOSES AN HOUR APART)
     Route: 048
  15. BUPROPRION [Concomitant]
     Active Substance: BUPROPION
     Dosage: 300 MG
     Route: 065
  16. VYVANSE [Concomitant]
     Active Substance: LISDEXAMFETAMINE DIMESYLATE
     Indication: ATTENTION DEFICIT HYPERACTIVITY DISORDER
     Dosage: 60 MG
     Route: 065
  17. SINGULAIR [Concomitant]
     Active Substance: MONTELUKAST SODIUM
     Route: 065
  18. VITAMIN K [Concomitant]
     Active Substance: PHYTONADIONE
     Route: 065
  19. DEPLIN [Concomitant]
     Active Substance: LEVOMEFOLATE CALCIUM
     Dosage: 15 MG
     Route: 065
  20. VITAMIN D [Concomitant]
     Active Substance: VITAMIN D NOS
     Dosage: 45000 IU
     Route: 065

REACTIONS (28)
  - Thinking abnormal [Unknown]
  - Hypotension [Unknown]
  - Postural orthostatic tachycardia syndrome [Not Recovered/Not Resolved]
  - Myocardial infarction [Unknown]
  - Eosinophilic oesophagitis [Unknown]
  - Decreased activity [Unknown]
  - Insomnia [Unknown]
  - Hypoaesthesia [Unknown]
  - Presyncope [Unknown]
  - Feeling abnormal [Unknown]
  - Gastrointestinal disorder [Unknown]
  - Dyspnoea [Unknown]
  - Syncope [Unknown]
  - Cardiac disorder [Unknown]
  - Viral infection [Unknown]
  - Chest pain [Unknown]
  - Palpitations [Unknown]
  - Dizziness [Unknown]
  - Tachycardia [Unknown]
  - Vision blurred [Unknown]
  - Impaired gastric emptying [Unknown]
  - Rash [Unknown]
  - Pruritus [Unknown]
  - Memory impairment [Unknown]
  - Anxiety [Unknown]
  - Peripheral vascular disorder [Unknown]
  - Affective disorder [Unknown]
  - Dysstasia [Unknown]
